FAERS Safety Report 17350059 (Version 2)
Quarter: 2020Q1

REPORT INFORMATION
  Report Type: Report from Study
  Country: None (occurrence: NL)
  Receive Date: 20200130
  Receipt Date: 20200207
  Transmission Date: 20200409
  Serious: Yes (Death, Life-Threatening, Other)
  Sender: FDA-Public Use
  Company Number: NL-ABBVIE-20K-114-3255893-00

PATIENT
  Sex: Female

DRUGS (3)
  1. NUTRIDRINK [Concomitant]
     Active Substance: CARBOHYDRATES\FATTY ACIDS\MINERALS\PROTEIN\VITAMINS
     Indication: PRODUCT USED FOR UNKNOWN INDICATION
  2. LORMETAZEPAM [Concomitant]
     Active Substance: LORMETAZEPAM
     Indication: PRODUCT USED FOR UNKNOWN INDICATION
  3. DUODOPA [Suspect]
     Active Substance: CARBIDOPA\LEVODOPA
     Indication: PARKINSON^S DISEASE
     Dosage: DAY: MD 20 CD: 6.7 ED: 5 NIGHT: CD: 2.9 ED: 3
     Route: 050
     Dates: start: 20190411, end: 20200128

REACTIONS (1)
  - Terminal state [Fatal]
